FAERS Safety Report 10979588 (Version 2)
Quarter: 2015Q2

REPORT INFORMATION
  Report Type: Report from Study
  Country: AU (occurrence: AU)
  Receive Date: 20150402
  Receipt Date: 20150403
  Transmission Date: 20150821
  Serious: Yes (Hospitalization, Other)
  Sender: FDA-Public Use
  Company Number: AU-BRISTOL-MYERS SQUIBB COMPANY-19831841

PATIENT
  Age: 64 Year
  Sex: Male
  Weight: 111.7 kg

DRUGS (26)
  1. IPILIMUMAB [Suspect]
     Active Substance: IPILIMUMAB
     Indication: METASTATIC MALIGNANT MELANOMA
     Route: 042
  2. PREDNISONE. [Concomitant]
     Active Substance: PREDNISONE
     Dosage: UNK
     Dates: start: 20131029
  3. DEXAMETHASONE. [Concomitant]
     Active Substance: DEXAMETHASONE
     Dosage: UNK
     Route: 042
  4. CARTIA XT [Concomitant]
     Active Substance: DILTIAZEM HYDROCHLORIDE
     Dosage: UNK
     Dates: start: 201208
  5. HYDROCORTISONE. [Concomitant]
     Active Substance: HYDROCORTISONE
     Dosage: UNK
     Route: 061
     Dates: start: 20130930
  6. PARACETAMOL [Concomitant]
     Active Substance: ACETAMINOPHEN
     Dosage: UNK
     Dates: start: 20131115
  7. HYDROCORTISONE. [Concomitant]
     Active Substance: HYDROCORTISONE
  8. LITHIUM. [Concomitant]
     Active Substance: LITHIUM
     Dosage: UNK
     Dates: start: 201208
  9. GLYCERIN. [Concomitant]
     Active Substance: GLYCERIN
     Dosage: UNK
     Dates: start: 20131113
  10. THYROXINE [Concomitant]
     Active Substance: LEVOTHYROXINE
  11. NORFLOXACIN [Concomitant]
     Active Substance: NORFLOXACIN
  12. ONDANSETRON [Concomitant]
     Active Substance: ONDANSETRON
  13. NORMAL SALINE [Concomitant]
     Active Substance: SODIUM CHLORIDE
     Dosage: .9 %, UNK
  14. MICROLAX [Concomitant]
     Dosage: UNK
     Dates: start: 20131113
  15. NIVOLUMAB [Suspect]
     Active Substance: NIVOLUMAB
     Indication: METASTATIC MALIGNANT MELANOMA
     Dosage: 1 DF = 1-3 MG/KG. 336/112 MG,315MG
     Route: 042
     Dates: start: 20130820
  16. COLOXYL + SENNA [Concomitant]
     Dosage: UNK
     Dates: start: 20131008
  17. PREDNISONE. [Concomitant]
     Active Substance: PREDNISONE
  18. MOVICOL [Concomitant]
     Active Substance: POLYETHYLENE GLYCOL 3350\POTASSIUM CHLORIDE\SODIUM BICARBONATE\SODIUM CHLORIDE
     Dosage: UNK
     Dates: start: 20131008
  19. LOPERAMIDE [Concomitant]
     Active Substance: LOPERAMIDE
     Dosage: UNK
     Dates: start: 20131109
  20. ASPIRIN. [Concomitant]
     Active Substance: ASPIRIN
     Dosage: UNK
     Dates: start: 201208
  21. CLEXANE [Concomitant]
     Active Substance: ENOXAPARIN SODIUM
  22. MAXOLON [Concomitant]
     Active Substance: METOCLOPRAMIDE HYDROCHLORIDE
  23. CODEINE PHOSPHATE [Concomitant]
     Active Substance: CODEINE PHOSPHATE
     Dosage: UNK
     Dates: start: 20131008
  24. MORPHINE [Concomitant]
     Active Substance: MORPHINE
  25. BUSCOPAN [Concomitant]
     Active Substance: BUTYLSCOPOLAMINE BROMIDE
  26. GELOFUSINE [Concomitant]
     Active Substance: GELATIN\SODIUM CHLORIDE

REACTIONS (4)
  - Vomiting [Recovered/Resolved]
  - Dehydration [Recovered/Resolved]
  - Hypopituitarism [Recovered/Resolved with Sequelae]
  - Acute kidney injury [Recovered/Resolved]

NARRATIVE: CASE EVENT DATE: 20131114
